FAERS Safety Report 15626765 (Version 1)
Quarter: 2018Q4

REPORT INFORMATION
  Report Type: Spontaneous
  Country: JP (occurrence: JP)
  Receive Date: 20181116
  Receipt Date: 20181116
  Transmission Date: 20190205
  Serious: Yes (Hospitalization)
  Sender: FDA-Public Use
  Company Number: JP-SA-2018SA311102

PATIENT
  Age: 7 Decade
  Sex: Male

DRUGS (3)
  1. OXALIPLATIN. [Suspect]
     Active Substance: OXALIPLATIN
     Indication: COLON CANCER
     Dosage: UNK UNK, QD
     Route: 041
  2. XELODA [Concomitant]
     Active Substance: CAPECITABINE
     Dosage: UNK UNK, QCY
  3. XELODA [Concomitant]
     Active Substance: CAPECITABINE
     Dosage: UNK UNK, QCY

REACTIONS (6)
  - Hypoalbuminaemia [Recovering/Resolving]
  - Hepatic atrophy [Recovering/Resolving]
  - Ascites [Recovering/Resolving]
  - Diarrhoea [Recovered/Resolved]
  - Cholecystitis [Unknown]
  - Oedema peripheral [Recovering/Resolving]
